FAERS Safety Report 7530817-6 (Version None)
Quarter: 2011Q2

REPORT INFORMATION
  Report Type: 
  Country: None (occurrence: None)
  Receive Date: 20110607
  Receipt Date: 20110523
  Transmission Date: 20111010
  Serious: Yes (Death)
  Sender: FDA-Public Use
  Company Number: FR-GENENTECH-319836

PATIENT

DRUGS (5)
  1. VINCRISTINE [Suspect]
     Indication: DIFFUSE LARGE B-CELL LYMPHOMA
     Dosage: 1 MG, Q3W
     Route: 065
  2. PREDNISONE [Suspect]
     Indication: DIFFUSE LARGE B-CELL LYMPHOMA
     Dosage: 40 MG/M2, UNK
     Route: 048
  3. DOXORUBICIN HCL [Suspect]
     Indication: DIFFUSE LARGE B-CELL LYMPHOMA
     Dosage: 25 MG/M2, Q3W
     Route: 065
  4. RITUXIMAB [Suspect]
     Indication: DIFFUSE LARGE B-CELL LYMPHOMA
     Dosage: 375 MG/M2, Q3W
     Route: 065
  5. CYCLOPHOSPHAMIDE [Suspect]
     Indication: DIFFUSE LARGE B-CELL LYMPHOMA
     Dosage: 400 MG/M2, Q3W
     Route: 065

REACTIONS (22)
  - GENERAL PHYSICAL HEALTH DETERIORATION [None]
  - FEBRILE NEUTROPENIA [None]
  - NEPHROPATHY TOXIC [None]
  - TRANSAMINASES INCREASED [None]
  - NEUTROPENIC SEPSIS [None]
  - ARRHYTHMIA [None]
  - BLOOD CREATININE ABNORMAL [None]
  - GENERAL SYMPTOM [None]
  - NEUROTOXICITY [None]
  - PULMONARY TOXICITY [None]
  - TOXICITY TO VARIOUS AGENTS [None]
  - CARDIAC FAILURE ACUTE [None]
  - OESOPHAGOBRONCHIAL FISTULA [None]
  - CLOSTRIDIUM DIFFICILE COLITIS [None]
  - INFECTION [None]
  - THROMBOCYTOPENIA [None]
  - CARDIOTOXICITY [None]
  - DEATH [None]
  - PULMONARY MYCOSIS [None]
  - ANAEMIA [None]
  - RENAL FAILURE ACUTE [None]
  - NEUTROPENIA [None]
